FAERS Safety Report 4863031-3 (Version None)
Quarter: 2005Q4

REPORT INFORMATION
  Report Type: 
  Country: None (occurrence: None)
  Receive Date: 20051221
  Receipt Date: 20051005
  Transmission Date: 20060501
  Serious: Yes (Hospitalization)
  Sender: FDA-Public Use
  Company Number: US-MERCK-0510USA04805

PATIENT
  Age: 73 Year
  Sex: Female
  Weight: 100 kg

DRUGS (5)
  1. VIOXX [Suspect]
     Indication: ARTHRALGIA
     Route: 048
     Dates: end: 20030101
  2. SYNTHROID [Concomitant]
     Route: 048
  3. GLUCOTROL [Concomitant]
     Route: 048
  4. ATENOLOL [Concomitant]
     Route: 048
  5. COUMADIN [Concomitant]
     Route: 048

REACTIONS (7)
  - ARTERIAL OCCLUSIVE DISEASE [None]
  - ARTERIOSCLEROSIS [None]
  - CARDIOVASCULAR DISORDER [None]
  - GALLBLADDER OPERATION [None]
  - HERNIA REPAIR [None]
  - MENTAL DISORDER [None]
  - THYROID DISORDER [None]
